FAERS Safety Report 20649806 (Version 4)
Quarter: 2022Q3

REPORT INFORMATION
  Report Type: Report from Study
  Country: CN (occurrence: CN)
  Receive Date: 20220329
  Receipt Date: 20220921
  Transmission Date: 20221027
  Serious: Yes (Death, Hospitalization, Other)
  Sender: FDA-Public Use
  Company Number: CN-BRISTOL-MYERS SQUIBB COMPANY-BMS-2022-040138

PATIENT
  Age: 61 Year
  Sex: Male
  Weight: 44 kg

DRUGS (26)
  1. PACLITAXEL [Suspect]
     Active Substance: PACLITAXEL
     Indication: Non-small cell lung cancer
     Dosage: LAST DOSE(63 MILLIGRAM) RECEIVED ON 01-MAR-2022
     Route: 065
     Dates: start: 20211221
  2. CARBOPLATIN [Suspect]
     Active Substance: CARBOPLATIN
     Indication: Non-small cell lung cancer
     Dosage: LAST DOSE 161 MILLIGRAM WAS RECEIVED ON 01-MAR-2022
     Route: 065
     Dates: start: 20211221
  3. PREDNISONE ACETATE [Concomitant]
     Active Substance: PREDNISONE ACETATE
     Indication: Product used for unknown indication
     Route: 048
     Dates: start: 20220208
  4. CEFDINIR [Concomitant]
     Active Substance: CEFDINIR
     Indication: Product used for unknown indication
     Dosage: 3 TIMES PER DAY
     Route: 048
     Dates: start: 20220128
  5. BIAN NAI TONG [Concomitant]
     Indication: Product used for unknown indication
     Dosage: BIANNAITONG TEA
     Route: 048
     Dates: start: 20211217
  6. MOXIFLOXACIN HYDROCHLORIDE [Concomitant]
     Active Substance: MOXIFLOXACIN HYDROCHLORIDE
     Indication: Product used for unknown indication
     Route: 042
     Dates: start: 20220313
  7. DEXAMETHASONE SODIUM PHOSPHATE [Concomitant]
     Active Substance: DEXAMETHASONE SODIUM PHOSPHATE
     Indication: Product used for unknown indication
     Dosage: DEXAMETHASONE SODIUM PHOSPHATE FOR INJECTION?DAILY; PER DAY
     Route: 050
     Dates: start: 20220224, end: 20220227
  8. DICLOFENAC SODIUM AND LIDOCAINE HYDROCHLORIDE [Concomitant]
     Indication: Product used for unknown indication
     Route: 042
     Dates: start: 20220224, end: 20220227
  9. METHYLPREDNISOLONE SODIUM SUCCINATE [Concomitant]
     Active Substance: METHYLPREDNISOLONE SODIUM SUCCINATE
     Indication: Product used for unknown indication
     Dosage: METHYLPREDNISOLONE SODIUM SUCCINATE FOR INJECTION
     Route: 042
     Dates: start: 20220224, end: 20220227
  10. ESOMEPRAZOLE SODIUM [Concomitant]
     Active Substance: ESOMEPRAZOLE SODIUM
     Indication: Product used for unknown indication
     Dosage: ESOMEPRAZOLE SODIUM FOR INJECTION
     Route: 042
     Dates: start: 20220225, end: 20220227
  11. YUN NAN BAI YAO [ACONITUM KUSNEZOFFII ROOT TUBER;ACONITUM SPP. ROOT TU [Concomitant]
     Indication: Product used for unknown indication
     Dosage: 1 DOSAGE FORM= 1 UNIT NOS?ONGOING
     Route: 048
     Dates: start: 20211214
  12. GASTROPYLOR COMPLEX [Concomitant]
     Indication: Nausea
     Dosage: 1 DOSAGE FORM= 3 UNITS NOS/DAY
     Route: 048
     Dates: start: 20220309, end: 20220311
  13. ESTAZOLAM [Concomitant]
     Active Substance: ESTAZOLAM
     Indication: Product used for unknown indication
     Dosage: ONGOING
     Route: 048
     Dates: start: 20220115
  14. RABEPRAZOLE SODIUM [Concomitant]
     Active Substance: RABEPRAZOLE SODIUM
     Indication: Product used for unknown indication
     Dosage: ONGOING
     Route: 048
     Dates: start: 20220119
  15. DEXAMETHASONE ACETATE [Concomitant]
     Active Substance: DEXAMETHASONE ACETATE
     Indication: Product used for unknown indication
     Route: 048
     Dates: start: 20220228, end: 20220301
  16. OMEPRAZOLE SODIUM [Concomitant]
     Active Substance: OMEPRAZOLE SODIUM
     Indication: Product used for unknown indication
     Dosage: OMEPRAZOLE SODIUM FOR INJECTION
     Route: 042
     Dates: start: 20220301, end: 20220302
  17. PALONOSETRON HYDROCHLORIDE [Concomitant]
     Active Substance: PALONOSETRON HYDROCHLORIDE
     Indication: Product used for unknown indication
     Route: 042
     Dates: start: 20220301, end: 20220302
  18. NICOTINAMIDE [Concomitant]
     Active Substance: NIACINAMIDE
     Indication: Product used for unknown indication
     Dosage: NICOTINAMIDE FOR INJECTION
     Route: 042
     Dates: start: 20220301, end: 20220302
  19. MAGNESIUM ISOGLYCYRRHIZINATE [Concomitant]
     Active Substance: MAGNESIUM ISOGLYCYRRHIZINATE
     Indication: Product used for unknown indication
     Route: 042
     Dates: start: 20220301, end: 20220302
  20. METHIONINE AND VITAMIN B1 [Concomitant]
     Indication: Product used for unknown indication
     Dosage: METHIONINE AND VITAMIN B1 FOR INJECTION
     Route: 042
     Dates: start: 20220301, end: 20220302
  21. DOLASETRON MESYLATE [Concomitant]
     Active Substance: DOLASETRON MESYLATE
     Indication: Product used for unknown indication
     Route: 042
     Dates: start: 20220301, end: 20220302
  22. OXYCODONE HYDROCHLORIDE [Concomitant]
     Active Substance: OXYCODONE HYDROCHLORIDE
     Indication: Product used for unknown indication
     Dosage: ONGOING
     Route: 048
     Dates: start: 20220118
  23. OXYCODONE HYDROCHLORIDE [Concomitant]
     Active Substance: OXYCODONE HYDROCHLORIDE
     Dosage: ONGOING
     Route: 048
     Dates: start: 20220127
  24. SHENG XUE BAO [Concomitant]
     Indication: Product used for unknown indication
     Dosage: SHENGXUEBAO MIXTURE?1 DF- 15 UNITS NOS?3 UNITS IN 1 DAY
     Route: 048
     Dates: start: 20220309, end: 20220311
  25. CEFACLOR [Concomitant]
     Active Substance: CEFACLOR
     Indication: Product used for unknown indication
     Route: 048
     Dates: start: 20220309, end: 20220310
  26. CISAPRIDE [Concomitant]
     Active Substance: CISAPRIDE
     Indication: Product used for unknown indication
     Dosage: 3 UNITS IN 1 DAY
     Route: 048
     Dates: start: 20220309, end: 20220311

REACTIONS (1)
  - Pneumonia [Fatal]

NARRATIVE: CASE EVENT DATE: 20220313
